FAERS Safety Report 8257244-0 (Version None)
Quarter: 2012Q2

REPORT INFORMATION
  Report Type: 
  Country: None (occurrence: None)
  Receive Date: 20120403
  Receipt Date: 20120327
  Transmission Date: 20120825
  Serious: Yes (Death, Hospitalization, Other)
  Sender: FDA-Public Use
  Company Number: KR-ELI_LILLY_AND_COMPANY-KR201203002244

PATIENT
  Age: 50 Year
  Sex: Male

DRUGS (2)
  1. HUMALOG MIX 75/25 [Suspect]
     Indication: TYPE 2 DIABETES MELLITUS
     Dosage: 40 U, EACH MORNING
     Route: 058
     Dates: start: 20111201
  2. HUMALOG MIX 75/25 [Suspect]
     Dosage: 18 U, EACH EVENING
     Route: 058
     Dates: start: 20111201

REACTIONS (2)
  - PULMONARY OEDEMA [None]
  - LUNG CARCINOMA CELL TYPE UNSPECIFIED STAGE IV [None]
